FAERS Safety Report 7307898-8 (Version None)
Quarter: 2011Q1

REPORT INFORMATION
  Report Type: 
  Country: None (occurrence: None)
  Receive Date: 20110210
  Receipt Date: 20110127
  Transmission Date: 20110831
  Serious: Yes (Death, Other)
  Sender: FDA-Public Use
  Company Number: 018612

PATIENT
  Age: 73 Year
  Sex: Female
  Weight: 52 kg

DRUGS (4)
  1. CEFEPIME [Concomitant]
  2. PHENYTOIN [Suspect]
     Indication: STATUS EPILEPTICUS
     Dosage: (100 MG TID)
  3. LACOSAMIDE [Suspect]
     Indication: STATUS EPILEPTICUS
     Dosage: (200 MG BID INTRAVENOUS (NOT OTHERWISE SPECIFIED))
     Route: 042
  4. LEVETIRACETAM [Suspect]
     Indication: STATUS EPILEPTICUS
     Dosage: (1500 MG BID)

REACTIONS (2)
  - ANGIOEDEMA [None]
  - TREATMENT FAILURE [None]
